FAERS Safety Report 21374873 (Version 1)
Quarter: 2022Q3

REPORT INFORMATION
  Report Type: Spontaneous
  Country: FR (occurrence: FR)
  Receive Date: 20220926
  Receipt Date: 20220926
  Transmission Date: 20221027
  Serious: Yes (Hospitalization)
  Sender: FDA-Public Use
  Company Number: FR-STRIDES ARCOLAB LIMITED-2022SP012022

PATIENT

DRUGS (1)
  1. TRAMADOL [Suspect]
     Active Substance: TRAMADOL
     Indication: Product used for unknown indication
     Dosage: UNK, (IMMEDIATE RELEASE)
     Route: 048

REACTIONS (3)
  - Accidental exposure to product by child [Unknown]
  - Urinary retention [Recovered/Resolved]
  - Toxicity to various agents [Unknown]
